FAERS Safety Report 8585485-1 (Version None)
Quarter: 2012Q3

REPORT INFORMATION
  Report Type: 
  Country: None (occurrence: None)
  Receive Date: 20120810
  Receipt Date: 20120417
  Transmission Date: 20120928
  Serious: No
  Sender: FDA-Public Use
  Company Number: US-GLAXOSMITHKLINE-A0974706A

PATIENT
  Age: 62 Year
  Sex: Female

DRUGS (9)
  1. REQUIP XL [Suspect]
     Indication: PARKINSON'S DISEASE
     Dosage: 2MG AT NIGHT
     Route: 048
     Dates: start: 20120320
  2. ZOLOFT [Concomitant]
  3. IBUPROFEN [Concomitant]
  4. ARICEPT [Concomitant]
  5. CALCIUM CARBONATE + VITAMIN D [Concomitant]
  6. VITAMIN D [Concomitant]
  7. REQUIP [Suspect]
     Dosage: .25MG AT NIGHT
     Route: 048
     Dates: start: 20120614
  8. TOVIAZ [Concomitant]
  9. NORVASC [Concomitant]

REACTIONS (9)
  - JOINT SWELLING [None]
  - ADVERSE DRUG REACTION [None]
  - INSOMNIA [None]
  - HEADACHE [None]
  - EYE PAIN [None]
  - LACRIMAL DISORDER [None]
  - WRONG TECHNIQUE IN DRUG USAGE PROCESS [None]
  - OEDEMA PERIPHERAL [None]
  - IMPULSIVE BEHAVIOUR [None]
